FAERS Safety Report 5303527-3 (Version None)
Quarter: 2007Q2

REPORT INFORMATION
  Report Type: 
  Country: None (occurrence: None)
  Receive Date: 20070420
  Receipt Date: 20070411
  Transmission Date: 20071010
  Serious: Yes (Other)
  Sender: FDA-Public Use
  Company Number: US-PFIZER INC-2007029734

PATIENT
  Sex: Female
  Weight: 58.1 kg

DRUGS (3)
  1. LIPITOR [Suspect]
     Indication: BLOOD CHOLESTEROL INCREASED
  2. INSULIN [Concomitant]
  3. NORVASC [Concomitant]

REACTIONS (9)
  - ASTHENIA [None]
  - BLOOD GLUCOSE DECREASED [None]
  - BODY TEMPERATURE DECREASED [None]
  - DIABETES MELLITUS [None]
  - HEART RATE INCREASED [None]
  - INFLUENZA [None]
  - MENTAL IMPAIRMENT [None]
  - SOMNOLENCE [None]
  - TREMOR [None]
